FAERS Safety Report 12689354 (Version 3)
Quarter: 2016Q3

REPORT INFORMATION
  Report Type: Spontaneous
  Country: US (occurrence: US)
  Receive Date: 20160826
  Receipt Date: 20160930
  Transmission Date: 20161109
  Serious: No
  Sender: FDA-Public Use
  Company Number: US-ASTRAZENECA-2016SE88970

PATIENT
  Sex: Male
  Weight: 99.8 kg

DRUGS (5)
  1. MEDICATION FOR CHOLESTEROL [Concomitant]
     Indication: BLOOD CHOLESTEROL
  2. WATER PILL [Concomitant]
     Active Substance: UNSPECIFIED INGREDIENT
  3. SYMBICORT [Suspect]
     Active Substance: BUDESONIDE\FORMOTEROL FUMARATE DIHYDRATE
     Indication: CHRONIC OBSTRUCTIVE PULMONARY DISEASE
     Dosage: TAKES ONE PUFF ONCE IN A WHILE
     Route: 055
  4. MEDICATION FOR HEART PRESSURE [Concomitant]
     Indication: CARDIAC DISCOMFORT
  5. SYMBICORT [Suspect]
     Active Substance: BUDESONIDE\FORMOTEROL FUMARATE DIHYDRATE
     Indication: CHRONIC OBSTRUCTIVE PULMONARY DISEASE
     Dosage: 160/4.5 MCG ONE PUFF TWICE PER DAY
     Route: 055
     Dates: start: 2014

REACTIONS (3)
  - Off label use [Unknown]
  - Intentional product misuse [Unknown]
  - Dyspnoea [Unknown]
